FAERS Safety Report 8810236 (Version 1)
Quarter: 2012Q4

REPORT INFORMATION
  Report Type: 
  Country: MY (occurrence: MY)
  Receive Date: 20120926
  Receipt Date: 20120926
  Transmission Date: 20130627
  Serious: Yes (Death, Other)
  Sender: FDA-Public Use
  Company Number: PHHO2005MY06671

PATIENT
  Age: 33 Year
  Sex: Male
  Weight: 55 kg

DRUGS (3)
  1. GLIVEC [Suspect]
     Indication: BLAST CRISIS IN MYELOGENOUS LEUKAEMIA
     Dosage: 600 mg, QD
     Route: 048
     Dates: start: 20040518
  2. HYDROXYUREA [Concomitant]
  3. VITAMIN B [Concomitant]

REACTIONS (2)
  - Pneumonia [Fatal]
  - Blast crisis in myelogenous leukaemia [Unknown]
